FAERS Safety Report 5406701-0 (Version None)
Quarter: 2007Q3

REPORT INFORMATION
  Report Type: 
  Country: None (occurrence: None)
  Receive Date: 20070807
  Receipt Date: 20070801
  Transmission Date: 20080115
  Serious: Yes (Life-Threatening, Hospitalization)
  Sender: FDA-Public Use
  Company Number: HQWYE329701AUG07

PATIENT
  Age: 85 Year
  Sex: Female

DRUGS (7)
  1. PROPRANOLOL HYDROCHLORIDE [Suspect]
     Indication: HEART RATE INCREASED
     Route: 048
  2. PROPRANOLOL HYDROCHLORIDE [Suspect]
     Dosage: NOT PROVIDED
     Route: 048
  3. AMPICILLIN [Concomitant]
     Indication: PNEUMONIA
     Dosage: NOT PROVIDED
     Route: 065
  4. FRUSEMIDE [Concomitant]
     Indication: CARDIAC FAILURE CONGESTIVE
     Dosage: NOT PROVIDED
     Route: 065
  5. PROPYLTHIOURACIL [Concomitant]
     Route: 048
  6. PROPRANOLOL [Suspect]
     Indication: HEART RATE INCREASED
     Dosage: 1 MG DOSE/4 DOSES IN 18 HOURS
     Route: 042
  7. DIGOXIN [Concomitant]
     Indication: CARDIAC FAILURE CONGESTIVE
     Dosage: NOT PROVIDED
     Route: 065

REACTIONS (3)
  - APNOEA [None]
  - BRADYCARDIA [None]
  - CIRCULATORY COLLAPSE [None]
